FAERS Safety Report 6207238-1 (Version None)
Quarter: 2009Q2

REPORT INFORMATION
  Report Type: 
  Country: None (occurrence: None)
  Receive Date: 20090522
  Receipt Date: 20090219
  Transmission Date: 20091009
  Serious: Yes (Hospitalization)
  Sender: FDA-Public Use
  Company Number: 8043439

PATIENT
  Age: 31 Year
  Sex: Male
  Weight: 83.4 kg

DRUGS (1)
  1. CIMZIA [Suspect]
     Indication: CROHN'S DISEASE
     Dosage: 400 MG /M SC
     Route: 058

REACTIONS (2)
  - ABDOMINAL PAIN [None]
  - SMALL INTESTINAL OBSTRUCTION [None]
